FAERS Safety Report 8847403 (Version 1)
Quarter: 2012Q4

REPORT INFORMATION
  Report Type: 
  Country: US (occurrence: US)
  Receive Date: 20121018
  Receipt Date: 20121018
  Transmission Date: 20130627
  Serious: No
  Sender: FDA-Public Use
  Company Number: US-PFIZER INC-2012259204

PATIENT

DRUGS (3)
  1. EFFEXOR [Suspect]
     Dosage: UNK
  2. EFFEXOR [Suspect]
     Dosage: 75 mg, UNK
  3. EFFEXOR [Suspect]
     Dosage: 150 mg, UNK

REACTIONS (2)
  - Back pain [Unknown]
  - Therapeutic response unexpected [Unknown]
